FAERS Safety Report 8916439 (Version 1)
Quarter: 2012Q4

REPORT INFORMATION
  Report Type: 
  Country: US (occurrence: US)
  Receive Date: 20121120
  Receipt Date: 20121120
  Transmission Date: 20130627
  Serious: Yes (Hospitalization)
  Sender: FDA-Public Use
  Company Number: US-BAYER-2012-119073

PATIENT
  Age: 26 Year
  Sex: Female

DRUGS (5)
  1. YAZ [Suspect]
  2. BEYAZ [Suspect]
  3. GIANVI [Suspect]
  4. ERYTHROMYCIN [Concomitant]
     Dosage: 2 %, UNK
  5. TRIAMCINOLONE [TRIAMCINOLONE] [Concomitant]
     Dosage: 0.1 %, UNK

REACTIONS (1)
  - Deep vein thrombosis [None]
